FAERS Safety Report 18006674 (Version 3)
Quarter: 2020Q3

REPORT INFORMATION
  Report Type: Spontaneous
  Country: US (occurrence: US)
  Receive Date: 20200710
  Receipt Date: 20200902
  Transmission Date: 20201103
  Serious: No
  Sender: FDA-Public Use
  Company Number: US-IPSEN BIOPHARMACEUTICALS, INC.-2020-11809

PATIENT
  Age: 15 Year
  Sex: Male

DRUGS (1)
  1. INCRELEX [Suspect]
     Active Substance: MECASERMIN
     Indication: SEVERE PRIMARY INSULIN LIKE GROWTH FACTOR-1 DEFICIENCY
     Dosage: NOT REPORTED
     Route: 065

REACTIONS (2)
  - Hypoglycaemia [Recovered/Resolved]
  - Fatigue [Recovered/Resolved]
